FAERS Safety Report 22598628 (Version 1)
Quarter: 2023Q2

REPORT INFORMATION
  Report Type: Report from Study
  Country: US (occurrence: US)
  Receive Date: 20230614
  Receipt Date: 20230614
  Transmission Date: 20230721
  Serious: Yes (Death, Other)
  Sender: FDA-Public Use
  Company Number: US-GILEAD-2023-0632376

PATIENT
  Age: 30 Year
  Sex: Female

DRUGS (1)
  1. AZTREONAM LYSINE [Suspect]
     Active Substance: AZTREONAM LYSINE
     Indication: Cystic fibrosis lung
     Dosage: 75 MG, TID (3 TIMES A DAY FOR 28 DAYS ON AND 28 DAYS OFF)
     Route: 055
     Dates: start: 202209

REACTIONS (1)
  - Death [Fatal]
